FAERS Safety Report 25275330 (Version 1)
Quarter: 2025Q2

REPORT INFORMATION
  Report Type: Spontaneous
  Country: US (occurrence: US)
  Receive Date: 20250506
  Receipt Date: 20250506
  Transmission Date: 20250716
  Serious: No
  Sender: GALPHARM INTERNATIONAL
  Company Number: US-PERRIGO-24US006185

PATIENT
  Sex: Female
  Weight: 62.132 kg

DRUGS (3)
  1. LEVOCETIRIZINE DIHYDROCHLORIDE [Suspect]
     Active Substance: LEVOCETIRIZINE DIHYDROCHLORIDE
     Indication: Hypersensitivity
     Route: 048
     Dates: start: 20240602, end: 20240602
  2. LEVOCETIRIZINE DIHYDROCHLORIDE [Suspect]
     Active Substance: LEVOCETIRIZINE DIHYDROCHLORIDE
     Route: 048
     Dates: start: 202406, end: 20240625
  3. NALTREXONE [Concomitant]
     Active Substance: NALTREXONE
     Indication: Autoimmune disorder
     Route: 065
     Dates: start: 2023

REACTIONS (4)
  - Insomnia [Recovered/Resolved]
  - Agitation [Recovered/Resolved]
  - Palpitations [Recovered/Resolved]
  - Somnolence [Recovered/Resolved]

NARRATIVE: CASE EVENT DATE: 20240601
